FAERS Safety Report 5762316-6 (Version None)
Quarter: 2008Q2

REPORT INFORMATION
  Report Type: 
  Country: None (occurrence: None)
  Receive Date: 20080609
  Receipt Date: 20080529
  Transmission Date: 20081010
  Serious: Yes (Hospitalization)
  Sender: FDA-Public Use
  Company Number: PHHY2008ES08989

PATIENT

DRUGS (3)
  1. TRILEPTAL [Suspect]
     Dosage: 8 ML, QD
     Route: 048
     Dates: start: 20070912, end: 20071026
  2. ZARONTIN [Concomitant]
     Dosage: UNK
     Dates: start: 20050101
  3. DEPAKENE [Concomitant]
     Dosage: UNK
     Dates: start: 20050101

REACTIONS (5)
  - DEPRESSED MOOD [None]
  - EYE MOVEMENT DISORDER [None]
  - GAIT DISTURBANCE [None]
  - PYREXIA [None]
  - THROMBOCYTOPENIA [None]
